FAERS Safety Report 13070855 (Version 4)
Quarter: 2017Q2

REPORT INFORMATION
  Report Type: Spontaneous
  Country: JP (occurrence: JP)
  Receive Date: 20161229
  Receipt Date: 20170515
  Transmission Date: 20170830
  Serious: Yes (Life-Threatening, Other)
  Sender: FDA-Public Use
  Company Number: JP-009507513-1612JPN010051

PATIENT
  Age: 80 Year
  Sex: Female
  Weight: 43 kg

DRUGS (13)
  1. ESLAX INTRAVENOUS 25MG/2.5ML [Concomitant]
     Active Substance: ROCURONIUM BROMIDE
     Indication: NEUROMUSCULAR BLOCKING THERAPY
     Dosage: 50 MG, UNK
     Route: 042
     Dates: start: 20161109, end: 20161109
  2. CEFAZOLIN SODIUM. [Concomitant]
     Active Substance: CEFAZOLIN SODIUM
     Dosage: 1 G, UNK
     Route: 041
     Dates: start: 20161109, end: 20161109
  3. FENTANYL. [Concomitant]
     Active Substance: FENTANYL
     Dosage: 125 MICRO-G/MICRO-L, UNK
     Route: 042
     Dates: start: 20161109, end: 20161109
  4. ESLAX INTRAVENOUS 25MG/2.5ML [Concomitant]
     Active Substance: ROCURONIUM BROMIDE
     Dosage: 10 MG, UNK
     Route: 042
     Dates: start: 20161109, end: 20161109
  5. PROPOFOL. [Concomitant]
     Active Substance: PROPOFOL
     Dosage: 70 MG, UNK
     Route: 042
     Dates: start: 20161109, end: 20161109
  6. NU-LOTAN TABLETS 50MG [Concomitant]
     Active Substance: LOSARTAN
     Dosage: UNK
     Route: 048
  7. ISODINE [Concomitant]
     Active Substance: POVIDONE-IODINE
     Indication: INFECTION PROPHYLAXIS
     Dosage: UNK
     Route: 003
     Dates: start: 20161109, end: 20161109
  8. EDIROL [Concomitant]
     Active Substance: ELDECALCITOL
     Dosage: UNK
     Route: 048
  9. ROPION [Suspect]
     Active Substance: FLURBIPROFEN AXETIL
     Dosage: 50 MG, UNK
     Route: 041
     Dates: start: 20161109, end: 20161109
  10. BRIDION [Suspect]
     Active Substance: SUGAMMADEX
     Indication: NEUROMUSCULAR BLOCKADE REVERSAL
     Dosage: 100 MG, UNK
     Route: 042
     Dates: start: 20161109, end: 20161109
  11. ULTIVA [Concomitant]
     Active Substance: REMIFENTANIL HYDROCHLORIDE
     Dosage: CONTINUOUS INFUSION
     Route: 042
     Dates: start: 20161109, end: 20161109
  12. ATELEC [Concomitant]
     Active Substance: CILNIDIPINE
     Dosage: UNK
     Route: 048
  13. CARDENALIN [Concomitant]
     Active Substance: DOXAZOSIN MESYLATE
     Dosage: UNK
     Route: 048

REACTIONS (2)
  - Haemorrhage [Unknown]
  - Anaphylactic shock [Recovering/Resolving]

NARRATIVE: CASE EVENT DATE: 20161109
